FAERS Safety Report 21049886 (Version 2)
Quarter: 2022Q3

REPORT INFORMATION
  Report Type: Spontaneous
  Country: US (occurrence: US)
  Receive Date: 20220706
  Receipt Date: 20220831
  Transmission Date: 20221027
  Serious: No
  Sender: FDA-Public Use
  Company Number: US-PFIZER INC-202200918387

PATIENT
  Age: 77 Year
  Sex: Female
  Weight: 67.13 kg

DRUGS (6)
  1. QUINAPRIL [Suspect]
     Active Substance: QUINAPRIL
     Dosage: UNK
  2. TOPROL XL [Concomitant]
     Active Substance: METOPROLOL SUCCINATE
     Indication: Blood pressure abnormal
     Dosage: 100 MG (AT NIGHT)
  3. AMLODIPINE BESYLATE [Concomitant]
     Active Substance: AMLODIPINE BESYLATE
     Indication: Blood pressure abnormal
     Dosage: 2.5 MG
  4. TIROSINT [Concomitant]
     Active Substance: LEVOTHYROXINE SODIUM
     Dosage: 50 UG GEL TABLET
  5. POTASSIUM CHLORIDE [Concomitant]
     Active Substance: POTASSIUM CHLORIDE
     Indication: Muscle spasms
     Dosage: 10 MEQ 2 IN THE MORNING AND 2 AT NIGHT CAPSULES
  6. FISH OIL [Concomitant]
     Active Substance: FISH OIL
     Indication: Blood cholesterol abnormal
     Dosage: UNK

REACTIONS (1)
  - Drug ineffective [Unknown]
